FAERS Safety Report 7648237-2 (Version None)
Quarter: 2011Q3

REPORT INFORMATION
  Report Type: 
  Country: None (occurrence: None)
  Receive Date: 20110801
  Receipt Date: 20110728
  Transmission Date: 20111222
  Serious: Yes (Death, Other)
  Sender: FDA-Public Use
  Company Number: US-PFIZER INC-2011115080

PATIENT
  Sex: Male

DRUGS (1)
  1. CHANTIX [Suspect]
     Indication: SMOKING CESSATION THERAPY
     Dosage: 0.5 MG AND 1.0 MG
     Dates: start: 20090701, end: 20091201

REACTIONS (7)
  - DEPRESSION [None]
  - AGGRESSION [None]
  - MOOD SWINGS [None]
  - COMPLETED SUICIDE [None]
  - MENTAL DISORDER [None]
  - NIGHTMARE [None]
  - ANXIETY [None]
